FAERS Safety Report 10563361 (Version 2)
Quarter: 2014Q4

REPORT INFORMATION
  Report Type: Spontaneous
  Country: US (occurrence: US)
  Receive Date: 20141104
  Receipt Date: 20141104
  Transmission Date: 20150529
  Serious: Yes (Death, Other)
  Sender: FDA-Public Use
  Company Number: US-GLAXOSMITHKLINE-A0900517A

PATIENT
  Sex: Female

DRUGS (1)
  1. AVANDIA [Suspect]
     Active Substance: ROSIGLITAZONE MALEATE
     Indication: DIABETES MELLITUS
     Dosage: 4 MG, BID
     Route: 048
     Dates: start: 200511, end: 200611

REACTIONS (6)
  - Arrhythmia [Fatal]
  - Cerebrovascular accident [Unknown]
  - Cardiac failure congestive [Fatal]
  - Arteriosclerosis [Fatal]
  - Cardiac arrest [Unknown]
  - Acute myocardial infarction [Fatal]
